FAERS Safety Report 4286076-3 (Version None)
Quarter: 2004Q1

REPORT INFORMATION
  Report Type: 
  Country: None (occurrence: None)
  Receive Date: 20040202
  Receipt Date: 20040202
  Transmission Date: 20041129
  Serious: Yes (Life-Threatening)
  Sender: FDA-Public Use
  Company Number: None

PATIENT
  Age: 46 Year
  Sex: Female

DRUGS (14)
  1. MORPHINE [Suspect]
     Indication: PAIN
     Dosage: 15 MG Q4 H PRN
     Dates: start: 20030906, end: 20030907
  2. MORPHINE [Suspect]
     Indication: PAIN
     Dosage: 30 MG Q 12 H
     Dates: start: 20030906, end: 20030907
  3. PANCREALIPASE [Concomitant]
  4. ALBUTEROL [Concomitant]
  5. AMITRIPTYLINE [Concomitant]
  6. ASCORBIC ACID [Concomitant]
  7. ESCITALOPRAM OXALATE [Concomitant]
  8. BUMETANIDE [Concomitant]
  9. FLUTICASONE PROPIONATE [Concomitant]
  10. DEXTROSE [Concomitant]
  11. METOCLOPRAMIDE [Concomitant]
  12. GABAPENTIN [Concomitant]
  13. HEPARIN [Concomitant]
  14. LANSOPRAZOLE [Concomitant]

REACTIONS (2)
  - CARDIO-RESPIRATORY ARREST [None]
  - COMA [None]
